FAERS Safety Report 9277053 (Version 3)
Quarter: 2014Q1

REPORT INFORMATION
  Report Type: Spontaneous
  Country: GB (occurrence: None)
  Receive Date: 20130501
  Receipt Date: 20140211
  Transmission Date: 20141002
  Serious: Yes (Other)
  Sender: FDA-Public Use
  Company Number: 2013000100

PATIENT
  Age: 85 Year
  Sex: Female
  Weight: 70 kg

DRUGS (11)
  1. ACEON (PERINDOPRIL ERBUMINE) TABLET [Suspect]
     Indication: HYPERTENSION
     Route: 048
     Dates: end: 20130412
  2. ADCAL (CALCIUM CARBONATE) [Concomitant]
     Dates: start: 20130308, end: 20130405
  3. ALENDRONIC ACID (ALENDRONIC ACID) [Concomitant]
  4. BENDROFLUMETHIAZIDE (BENDROFLUMETHIAZIDE) [Concomitant]
  5. BRINZOLAMIDE (BRINZOLAMIDE) [Concomitant]
  6. CLOPIDOGREL (CLOPIDOGREL) [Concomitant]
  7. OMEPRAZOLE (OMEPRAZOLE) [Concomitant]
  8. PREGABALIN (PREGABALIN) [Concomitant]
  9. RANITIDINE (RANITIDINE) [Concomitant]
  10. SYSTANE [Concomitant]
  11. TIMOLOL (TIMOLOL) (NONE) [Concomitant]

REACTIONS (2)
  - Raynaud^s phenomenon [None]
  - Left ventricular dysfunction [None]
